FAERS Safety Report 8041344-4 (Version None)
Quarter: 2012Q1

REPORT INFORMATION
  Report Type: 
  Country: None (occurrence: None)
  Receive Date: 20120112
  Receipt Date: 20120106
  Transmission Date: 20120608
  Serious: No
  Sender: FDA-Public Use
  Company Number: US-PFIZER INC-2012007074

PATIENT
  Age: 47 Year
  Sex: Female

DRUGS (1)
  1. LYRICA [Suspect]
     Indication: FIBROMYALGIA

REACTIONS (6)
  - NECK PAIN [None]
  - BACK PAIN [None]
  - MUSCLE TWITCHING [None]
  - PAIN IN EXTREMITY [None]
  - MUSCLE SPASMS [None]
  - COCCYDYNIA [None]
